FAERS Safety Report 17438838 (Version 1)
Quarter: 2020Q1

REPORT INFORMATION
  Report Type: Spontaneous
  Country: US (occurrence: US)
  Receive Date: 20200205
  Receipt Date: 20200205
  Transmission Date: 20200409
  Serious: No
  Sender: FDA-Public Use
  Company Number: None

PATIENT
  Age: 54 Year
  Sex: Female

DRUGS (1)
  1. VEMLIDY [Suspect]
     Active Substance: TENOFOVIR ALAFENAMIDE FUMARATE
     Dosage: ?          OTHER DOSE:25;?
     Route: 048
     Dates: start: 20190101

REACTIONS (1)
  - Pruritus [None]

NARRATIVE: CASE EVENT DATE: 20200205
